FAERS Safety Report 4476285-2 (Version None)
Quarter: 2004Q3

REPORT INFORMATION
  Report Type: 
  Country: None (occurrence: None)
  Receive Date: 20040923
  Receipt Date: 20040719
  Transmission Date: 20050211
  Serious: No
  Sender: FDA-Public Use
  Company Number: USA040772948

PATIENT
  Age: 74 Year
  Sex: Female
  Weight: 57 kg

DRUGS (3)
  1. FORTEO [Suspect]
     Indication: OSTEOPOROSIS
     Dosage: 20 UG/ 1 DAY
     Dates: start: 20040524
  2. CALTRATE (CALCIUM CARBONATE) [Concomitant]
  3. MOEXIPRIL HCL [Concomitant]

REACTIONS (4)
  - ABNORMAL FAECES [None]
  - BUTTOCK PAIN [None]
  - MUSCLE CRAMP [None]
  - NIGHT CRAMPS [None]
